FAERS Safety Report 19810205 (Version 1)
Quarter: 2021Q3

REPORT INFORMATION
  Report Type: Report from Study
  Country: US (occurrence: US)
  Receive Date: 20210908
  Receipt Date: 20210908
  Transmission Date: 20211014
  Serious: Yes (Other)
  Sender: FDA-Public Use
  Company Number: US-BRISTOL-MYERS SQUIBB COMPANY-BMS-2021-089429

PATIENT
  Sex: Male

DRUGS (1)
  1. APIXABAN [Suspect]
     Active Substance: APIXABAN
     Indication: INTRACARDIAC THROMBUS
     Dosage: UNK
     Route: 065
     Dates: start: 2012

REACTIONS (3)
  - Intentional product use issue [Unknown]
  - Pulmonary thrombosis [Unknown]
  - Thrombosis [Unknown]
